FAERS Safety Report 13791682 (Version 1)
Quarter: 2017Q3

REPORT INFORMATION
  Report Type: Spontaneous
  Country: US (occurrence: US)
  Receive Date: 20170725
  Receipt Date: 20170725
  Transmission Date: 20171127
  Serious: Yes (Other)
  Sender: FDA-Public Use
  Company Number: None

PATIENT
  Age: 62 Year
  Sex: Female

DRUGS (6)
  1. MVI [Concomitant]
     Active Substance: VITAMINS
  2. ATROVENT [Concomitant]
     Active Substance: IPRATROPIUM BROMIDE
  3. CALCIUM SUPPLEMENT [Concomitant]
     Active Substance: CALCIUM
  4. PROBIOTIC [Concomitant]
     Active Substance: PROBIOTICS NOS
  5. APAP [Concomitant]
     Active Substance: ACETAMINOPHEN
  6. GAVILYTE - N [Suspect]
     Active Substance: POLYETHYLENE GLYCOL 3350\POTASSIUM CHLORIDE\SODIUM BICARBONATE\SODIUM CHLORIDE
     Indication: BOWEL PREPARATION
     Dosage: ?          QUANTITY:1 CUP;OTHER FREQUENCY:EVERY 15 MINUTES;?
     Route: 048

REACTIONS (5)
  - Tremor [None]
  - Vision blurred [None]
  - Dysphagia [None]
  - Muscle twitching [None]
  - Pulmonary congestion [None]

NARRATIVE: CASE EVENT DATE: 20170723
